FAERS Safety Report 10052435 (Version 1)
Quarter: 2014Q2

REPORT INFORMATION
  Report Type: Not Available
  Country: FR (occurrence: FR)
  Receive Date: 20140402
  Receipt Date: 20140402
  Transmission Date: 20141212
  Serious: Yes (Hospitalization)
  Sender: FDA-Public Use
  Company Number: FR-ASTELLAS-2014US003205

PATIENT
  Age: 60 Year
  Sex: Female

DRUGS (3)
  1. TARCEVA [Suspect]
     Indication: LUNG CANCER METASTATIC
     Dosage: UNK
     Route: 048
     Dates: start: 20130830, end: 20131025
  2. PACLITAXEL [Suspect]
     Indication: LUNG CANCER METASTATIC
     Dosage: 151.2 MG, 1IN 1 CYCLIC
     Route: 042
     Dates: start: 20131206, end: 20131206
  3. DOCETAXEL [Suspect]
     Indication: LUNG CANCER METASTATIC
     Dosage: 75 MG/M2, 1 IN 1 CYCLIC
     Route: 042
     Dates: start: 20130614, end: 20130802

REACTIONS (1)
  - Neuropathy peripheral [Unknown]
